FAERS Safety Report 20512511 (Version 2)
Quarter: 2022Q1

REPORT INFORMATION
  Report Type: Spontaneous
  Country: CZ (occurrence: CZ)
  Receive Date: 20220224
  Receipt Date: 20220307
  Transmission Date: 20220423
  Serious: Yes (Hospitalization)
  Sender: FDA-Public Use
  Company Number: CZ-CELGENE-CZE-20220200802

PATIENT
  Age: 66 Year
  Sex: Female
  Weight: 72 kg

DRUGS (17)
  1. RITUXIMAB [Suspect]
     Active Substance: RITUXIMAB
     Indication: Follicular lymphoma
     Dosage: 375 MG/M2, 1X/DAY (REGIMEN 1)
     Route: 041
     Dates: start: 20211203, end: 20211203
  2. RITUXIMAB [Suspect]
     Active Substance: RITUXIMAB
     Dosage: 375 MG/M2, 1X/DAY (REGIMEN 2)
     Route: 041
     Dates: start: 20211207, end: 20211207
  3. RITUXIMAB [Suspect]
     Active Substance: RITUXIMAB
     Dosage: 375 MG/M2, 1X/DAY (REGIMEN 3)
     Route: 041
     Dates: start: 20211217, end: 20211217
  4. RITUXIMAB [Suspect]
     Active Substance: RITUXIMAB
     Dosage: 375 MG/M2, 1X/DAY (REGIMEN 4)
     Route: 041
     Dates: start: 20220110, end: 20220110
  5. EPCORITAMAB [Suspect]
     Active Substance: EPCORITAMAB
     Indication: Follicular lymphoma
     Dosage: 0.16 MG, 2X/DAY (PRIMARY DOSE)
     Route: 058
     Dates: start: 20211203, end: 20211203
  6. EPCORITAMAB [Suspect]
     Active Substance: EPCORITAMAB
     Dosage: 0.8 MG, 2X/DAY (INTERMIDIATE DOSE)
     Route: 058
     Dates: start: 20211210, end: 20211210
  7. EPCORITAMAB [Suspect]
     Active Substance: EPCORITAMAB
     Dosage: 48 MG, WEEKLY
     Route: 058
     Dates: start: 20211217, end: 20220110
  8. EPCORITAMAB [Suspect]
     Active Substance: EPCORITAMAB
     Dosage: 48 MGMILLIGRAM375MG/M2 , WEEKLY
     Route: 041
     Dates: start: 20220110, end: 20220110
  9. EPCORITAMAB [Suspect]
     Active Substance: EPCORITAMAB
     Dosage: 48 MG, UNK
     Route: 065
     Dates: start: 20220127, end: 20220127
  10. LENALIDOMIDE [Suspect]
     Active Substance: LENALIDOMIDE
     Indication: Follicular lymphoma
     Dosage: 20 MG, 1X/DAY
     Route: 048
     Dates: start: 20211207, end: 20211227
  11. BISULEPIN [Concomitant]
     Active Substance: BISULEPIN
     Dosage: 1 IU  (1 UNIT)
     Route: 041
     Dates: start: 20220110, end: 20220110
  12. ACETAMINOPHEN [Concomitant]
     Active Substance: ACETAMINOPHEN
     Dosage: 1000 MG
     Route: 048
     Dates: start: 20220110, end: 20220110
  13. DEXAMETHASONE [Concomitant]
     Active Substance: DEXAMETHASONE
     Indication: Prophylaxis
     Dosage: 4 MG
     Route: 048
     Dates: start: 20220111, end: 20220114
  14. CARSAXA [Concomitant]
     Dosage: UNK
     Route: 048
     Dates: start: 20210407
  15. ACYCLOVIR [Concomitant]
     Active Substance: ACYCLOVIR
     Dosage: UNK
     Route: 048
     Dates: start: 20220103
  16. OMEPRAZOLE [Concomitant]
     Active Substance: OMEPRAZOLE
     Dosage: UNK
     Route: 048
     Dates: start: 20211203
  17. ATORVASTATIN CALCIUM [Concomitant]
     Active Substance: ATORVASTATIN CALCIUM
     Dosage: UNK
     Route: 048
     Dates: start: 20210407

REACTIONS (1)
  - Vascular stent occlusion [Recovered/Resolved]

NARRATIVE: CASE EVENT DATE: 20220119
